FAERS Safety Report 7964720-4 (Version None)
Quarter: 2011Q4

REPORT INFORMATION
  Report Type: 
  Country: None (occurrence: None)
  Receive Date: 20111206
  Receipt Date: 20111206
  Transmission Date: 20120403
  Serious: Yes (Hospitalization)
  Sender: FDA-Public Use
  Company Number: None

PATIENT
  Sex: Male
  Weight: 12.2 kg

DRUGS (5)
  1. DEXAMETHASONE [Suspect]
     Dosage: 95.2 MG
  2. CYTARABINE [Suspect]
     Dosage: 50 MG
  3. METHOTREXATE [Suspect]
     Dosage: 20 MG
  4. PEG-L-ASPARAGINASE (PEGASPARGASE, ONCOSPAR) [Suspect]
     Dosage: 1400 UNIT
  5. VINCRISTINE SULFATE [Suspect]
     Dosage: 3.2 MG

REACTIONS (11)
  - EYE INFECTION FUNGAL [None]
  - IRRITABILITY [None]
  - ASTHENIA [None]
  - SINUSITIS FUNGAL [None]
  - BLINDNESS [None]
  - RETINAL ARTERY OCCLUSION [None]
  - SEPTIC EMBOLUS [None]
  - CELLULITIS ORBITAL [None]
  - ZYGOMYCOSIS [None]
  - FEBRILE NEUTROPENIA [None]
  - MENINGITIS [None]
